FAERS Safety Report 7700641-X (Version None)
Quarter: 2011Q3

REPORT INFORMATION
  Report Type: 
  Country: None (occurrence: None)
  Receive Date: 20110822
  Receipt Date: 20110822
  Transmission Date: 20111222
  Serious: Yes (Other)
  Sender: FDA-Public Use
  Company Number: None

PATIENT
  Age: 36 Year
  Sex: Male
  Weight: 75.296 kg

DRUGS (1)
  1. PREDNISONE TAB [Suspect]
     Indication: COUGH
     Dosage: 20MG
     Route: 048
     Dates: start: 20110718, end: 20110815

REACTIONS (7)
  - MYALGIA [None]
  - WEIGHT INCREASED [None]
  - ACNE [None]
  - FATIGUE [None]
  - NIGHT SWEATS [None]
  - PHYSICAL EXAMINATION ABNORMAL [None]
  - JOINT STIFFNESS [None]
